FAERS Safety Report 25264714 (Version 1)
Quarter: 2025Q2

REPORT INFORMATION
  Report Type: Spontaneous
  Country: US (occurrence: US)
  Receive Date: 20250502
  Receipt Date: 20250502
  Transmission Date: 20250717
  Serious: No
  Sender: MYLAN
  Company Number: US-MYLANLABS-2025M1037530

PATIENT
  Sex: Female
  Weight: 95.25 kg

DRUGS (4)
  1. NORVASC [Suspect]
     Active Substance: AMLODIPINE BESYLATE
     Indication: Hypertension
     Dosage: 10 MILLIGRAM, PM (EVERY NIGHT)
     Dates: start: 202503, end: 202504
  2. NORVASC [Suspect]
     Active Substance: AMLODIPINE BESYLATE
     Dosage: 10 MILLIGRAM, PM (EVERY NIGHT)
     Route: 048
     Dates: start: 202503, end: 202504
  3. NORVASC [Suspect]
     Active Substance: AMLODIPINE BESYLATE
     Dosage: 10 MILLIGRAM, PM (EVERY NIGHT)
     Route: 048
     Dates: start: 202503, end: 202504
  4. NORVASC [Suspect]
     Active Substance: AMLODIPINE BESYLATE
     Dosage: 10 MILLIGRAM, PM (EVERY NIGHT)
     Dates: start: 202503, end: 202504

REACTIONS (4)
  - Somatic dysfunction [Unknown]
  - Muscle tightness [Unknown]
  - Headache [Unknown]
  - Pain [Unknown]
